FAERS Safety Report 4381783-6 (Version None)
Quarter: 2004Q2

REPORT INFORMATION
  Report Type: 
  Country: None (occurrence: None)
  Receive Date: 20040618
  Receipt Date: 20040602
  Transmission Date: 20050107
  Serious: Yes (Death, Hospitalization)
  Sender: FDA-Public Use
  Company Number: A-US2004-05085

PATIENT
  Age: 67 Year
  Sex: Male

DRUGS (8)
  1. TRACLEER [Suspect]
     Indication: PULMONARY HYPERTENSION
     Dosage: SEE IMAGE
     Route: 048
     Dates: start: 20020501, end: 20020601
  2. TRACLEER [Suspect]
     Indication: PULMONARY HYPERTENSION
     Dosage: SEE IMAGE
     Route: 048
     Dates: start: 20020601
  3. LOVASTATIN [Concomitant]
  4. LASIX [Concomitant]
  5. LISINOPRIL [Concomitant]
  6. POTASSIUM (POTASSIUM) [Concomitant]
  7. ALLOPURINOL [Concomitant]
  8. CHEMOTHERAPY [Concomitant]

REACTIONS (4)
  - COLON CANCER STAGE IV [None]
  - MALIGNANT NEOPLASM PROGRESSION [None]
  - METASTASES TO BONE [None]
  - METASTASES TO LIVER [None]
